FAERS Safety Report 9618499 (Version 3)
Quarter: 2013Q4

REPORT INFORMATION
  Report Type: Spontaneous
  Country: US (occurrence: US)
  Receive Date: 20131014
  Receipt Date: 20131230
  Transmission Date: 20140711
  Serious: Yes (Other)
  Sender: FDA-Public Use
  Company Number: US-PFIZER INC-2013289220

PATIENT
  Age: 58 Year
  Sex: Female

DRUGS (2)
  1. XALKORI [Suspect]
     Indication: LUNG NEOPLASM MALIGNANT
     Dosage: 250 MG, 2X/DAY (TAKE ONE CAPSULE EVERY 12 HOURS)
     Dates: start: 201304
  2. XALKORI [Suspect]
     Dosage: UNK

REACTIONS (7)
  - Mastoiditis [Unknown]
  - Cerebral haemorrhage [Unknown]
  - Kidney infection [Unknown]
  - Diarrhoea [Unknown]
  - Incision site infection [Unknown]
  - Nausea [Unknown]
  - Thrombosis [Unknown]
